FAERS Safety Report 8822470 (Version 1)
Quarter: 2012Q4

REPORT INFORMATION
  Report Type: Report from Study
  Country: US (occurrence: US)
  Receive Date: 20121003
  Receipt Date: 20121003
  Transmission Date: 20130627
  Serious: Yes (Other)
  Sender: FDA-Public Use
  Company Number: US-ASTELLAS-2012US007669

PATIENT
  Age: 68 None
  Sex: Male
  Weight: 60 kg

DRUGS (1)
  1. ERLOTINIB TABLET [Suspect]
     Indication: LUNG CARCINOMA CELL TYPE UNSPECIFIED STAGE 0
     Dosage: 150 mg, UID/QD
     Route: 048
     Dates: start: 20101020, end: 20120731

REACTIONS (7)
  - Pleural effusion [Unknown]
  - Malignant neoplasm progression [Unknown]
  - Rash [Unknown]
  - Constipation [Unknown]
  - Asthenia [Unknown]
  - Fatigue [Unknown]
  - Hypophagia [Unknown]
